FAERS Safety Report 26165701 (Version 1)
Quarter: 2025Q4

REPORT INFORMATION
  Report Type: Spontaneous
  Country: US (occurrence: US)
  Receive Date: 20251216
  Receipt Date: 20251216
  Transmission Date: 20260117
  Serious: Yes (Life-Threatening, Hospitalization)
  Sender: MYLAN
  Company Number: US-MYLANLABS-2025M1105603

PATIENT
  Sex: Male

DRUGS (2)
  1. ACETAMINOPHEN [Suspect]
     Active Substance: ACETAMINOPHEN
     Indication: Product used for unknown indication
     Dosage: 100 DOSAGE FORM, INGESTED 100 EXTENDED-RELEASE TABLETS
     Route: 061
  2. APIXABAN [Concomitant]
     Active Substance: APIXABAN
     Indication: Pulmonary embolism
     Dosage: UNK

REACTIONS (6)
  - Toxicity to various agents [Recovering/Resolving]
  - Encephalopathy [Recovered/Resolved]
  - Coma [Recovered/Resolved]
  - Metabolic acidosis [Recovering/Resolving]
  - Intentional overdose [Recovering/Resolving]
  - Suicide attempt [Recovering/Resolving]
